FAERS Safety Report 17435648 (Version 1)
Quarter: 2020Q1

REPORT INFORMATION
  Report Type: Spontaneous
  Country: US (occurrence: US)
  Receive Date: 20200219
  Receipt Date: 20200219
  Transmission Date: 20200409
  Serious: Yes (Hospitalization)
  Sender: FDA-Public Use
  Company Number: US-AMNEAL PHARMACEUTICALS-2020-AMRX-00421

PATIENT
  Age: 6 Year
  Sex: Female
  Weight: 22.91 kg

DRUGS (1)
  1. VIGABATRIN. [Suspect]
     Active Substance: VIGABATRIN
     Indication: EPILEPSY
     Dosage: 2000 MILLIGRAM, 2 /DAY
     Route: 048

REACTIONS (2)
  - Seizure [Unknown]
  - Product dose omission [Unknown]

NARRATIVE: CASE EVENT DATE: 20200207
